FAERS Safety Report 5608479-4 (Version None)
Quarter: 2008Q1

REPORT INFORMATION
  Report Type: 
  Country: None (occurrence: None)
  Receive Date: 20080125
  Receipt Date: 20080114
  Transmission Date: 20080703
  Serious: Yes (Hospitalization, Other)
  Sender: FDA-Public Use
  Company Number: 2007BI005881

PATIENT
  Age: 61 Year
  Sex: Female

DRUGS (1)
  1. AVONEX [Suspect]
     Indication: MULTIPLE SCLEROSIS
     Dosage: 30 UG;QW;IM
     Route: 030
     Dates: start: 20021101

REACTIONS (7)
  - ANAEMIA POSTOPERATIVE [None]
  - CHOLELITHIASIS [None]
  - DIABETES MELLITUS [None]
  - HYPERGLYCAEMIA [None]
  - NEUROGENIC BLADDER [None]
  - PANCREATITIS [None]
  - URINARY TRACT INFECTION [None]
